FAERS Safety Report 19651485 (Version 1)
Quarter: 2021Q3

REPORT INFORMATION
  Report Type: Report from Study
  Country: CA (occurrence: CA)
  Receive Date: 20210803
  Receipt Date: 20210803
  Transmission Date: 20211014
  Serious: Yes (Other)
  Sender: FDA-Public Use
  Company Number: CA-ACCORD-234104

PATIENT
  Sex: Female

DRUGS (4)
  1. ACTEMRA [Suspect]
     Active Substance: TOCILIZUMAB
     Indication: RHEUMATOID FACTOR POSITIVE
     Dosage: 1 EVERY 1 WEEKS, SOLUTION FOR INJECTION IN PRE?FILLED SYRINGE
     Route: 058
  2. MYCOPHENOLIC ACID. [Suspect]
     Active Substance: MYCOPHENOLIC ACID
     Indication: PRODUCT USED FOR UNKNOWN INDICATION
     Route: 065
  3. CYCLOBENZAPRINE. [Concomitant]
     Active Substance: CYCLOBENZAPRINE
     Indication: BACK PAIN
  4. ACTEMRA [Suspect]
     Active Substance: TOCILIZUMAB
     Indication: RHEUMATOID FACTOR POSITIVE
     Route: 042

REACTIONS (7)
  - Musculoskeletal stiffness [Unknown]
  - Arthralgia [Unknown]
  - Erythema [Unknown]
  - Back pain [Unknown]
  - Ecchymosis [Unknown]
  - Joint swelling [Unknown]
  - Rash [Unknown]
